FAERS Safety Report 15945066 (Version 3)
Quarter: 2019Q2

REPORT INFORMATION
  Report Type: Report from Study
  Country: US (occurrence: US)
  Receive Date: 20190211
  Receipt Date: 20190530
  Transmission Date: 20190711
  Serious: Yes (Other)
  Sender: FDA-Public Use
  Company Number: US-SA-2019SA011596

PATIENT
  Age: 14 Year
  Sex: Female

DRUGS (2)
  1. AGALSIDASE BETA [Suspect]
     Active Substance: AGALSIDASE BETA
     Indication: FABRY^S DISEASE
     Dosage: 55.00 (UNITS: NOT REPORTED),Q2
     Route: 041
     Dates: start: 20181218
  2. AGALSIDASE BETA [Suspect]
     Active Substance: AGALSIDASE BETA
     Dosage: 55 (UNITS NOT PROVIDED), FREQUENCY: Q2
     Route: 041
     Dates: start: 20181228

REACTIONS (8)
  - Throat irritation [Unknown]
  - Anxiety [Recovering/Resolving]
  - Constipation [Unknown]
  - Vomiting [Unknown]
  - Abdominal pain upper [Unknown]
  - Cardiac flutter [Recovering/Resolving]
  - Tremor [Recovering/Resolving]
  - Formication [Unknown]

NARRATIVE: CASE EVENT DATE: 20190201
